FAERS Safety Report 4711661-1 (Version None)
Quarter: 2005Q2

REPORT INFORMATION
  Report Type: 
  Country: None (occurrence: None)
  Receive Date: 20050629
  Receipt Date: 20050429
  Transmission Date: 20051028
  Serious: No
  Sender: FDA-Public Use
  Company Number: 05P-163-0298887-00

PATIENT
  Age: 43 Year
  Sex: Female
  Weight: 100 kg

DRUGS (12)
  1. HUMIRA [Suspect]
     Indication: RHEUMATOID ARTHRITIS
     Dosage: 40 MG, 1 IN 2 WK, SUBCUTANEOUS; 40 MG, 1 IN 1 WK, SUBCUTANEOUS;  40 MG, 1 IN 2 WK, SUBCUTANEOUS
     Route: 058
     Dates: start: 20031230, end: 20040301
  2. HUMIRA [Suspect]
     Indication: RHEUMATOID ARTHRITIS
     Dosage: 40 MG, 1 IN 2 WK, SUBCUTANEOUS; 40 MG, 1 IN 1 WK, SUBCUTANEOUS;  40 MG, 1 IN 2 WK, SUBCUTANEOUS
     Route: 058
     Dates: start: 20040301, end: 20040301
  3. HUMIRA [Suspect]
     Indication: RHEUMATOID ARTHRITIS
     Dosage: 40 MG, 1 IN 2 WK, SUBCUTANEOUS; 40 MG, 1 IN 1 WK, SUBCUTANEOUS;  40 MG, 1 IN 2 WK, SUBCUTANEOUS
     Route: 058
     Dates: start: 20040501, end: 20050101
  4. HUMIRA [Suspect]
     Indication: RHEUMATOID ARTHRITIS
     Dosage: 40 MG, 1 IN 2 WK, SUBCUTANEOUS; 40 MG, 1 IN 1 WK, SUBCUTANEOUS;  40 MG, 1 IN 2 WK, SUBCUTANEOUS
     Route: 058
     Dates: start: 20050428
  5. PREDNISONE [Concomitant]
  6. ADVAIR DISKUS 100/50 [Concomitant]
  7. SALBUTAMOL [Concomitant]
  8. CETIRIZINE HYDROCHLORIDE [Concomitant]
  9. ESOMEPRAZOLE [Concomitant]
  10. SLEEPING PILL [Concomitant]
  11. HYDROCODONE BITARTRATE [Concomitant]
  12. AMITRIPTYLINE HCL [Concomitant]

REACTIONS (6)
  - DRUG INEFFECTIVE [None]
  - INJECTION SITE NODULE [None]
  - INJECTION SITE PAIN [None]
  - MYALGIA [None]
  - PNEUMONIA [None]
  - SKIN TIGHTNESS [None]
